FAERS Safety Report 8853032 (Version 1)
Quarter: 2012Q4

REPORT INFORMATION
  Report Type: 
  Country: US (occurrence: US)
  Receive Date: 20121022
  Receipt Date: 20121022
  Transmission Date: 20130627
  Serious: No
  Sender: FDA-Public Use
  Company Number: US-PFIZER INC-2012258527

PATIENT
  Age: 63 Year
  Sex: Male
  Weight: 95.24 kg

DRUGS (2)
  1. CORTISONE [Suspect]
     Indication: BACK PAIN
     Dosage: UNK, as needed
     Dates: start: 200307, end: 2012
  2. HYDROCODONE [Concomitant]
     Indication: BACK PAIN
     Dosage: UNK

REACTIONS (1)
  - Drug ineffective [Unknown]
